FAERS Safety Report 17440915 (Version 1)
Quarter: 2020Q1

REPORT INFORMATION
  Report Type: Spontaneous
  Country: US (occurrence: US)
  Receive Date: 20200220
  Receipt Date: 20200220
  Transmission Date: 20200409
  Serious: Yes (Death, Other)
  Sender: FDA-Public Use
  Company Number: US-GILEAD-2020-0451590

PATIENT
  Age: 68 Year
  Sex: Male
  Weight: 120.8 kg

DRUGS (1)
  1. YESCARTA [Suspect]
     Active Substance: AXICABTAGENE CILOLEUCEL
     Indication: DIFFUSE LARGE B-CELL LYMPHOMA REFRACTORY
     Dosage: ^MAX (2X10^8)^
     Route: 042
     Dates: start: 20190424, end: 20190424

REACTIONS (1)
  - Nervous system disorder [Fatal]

NARRATIVE: CASE EVENT DATE: 20190705
